FAERS Safety Report 11142579 (Version 1)
Quarter: 2015Q2

REPORT INFORMATION
  Report Type: Spontaneous
  Country: HR (occurrence: HR)
  Receive Date: 20150527
  Receipt Date: 20150527
  Transmission Date: 20150821
  Serious: Yes (Other)
  Sender: FDA-Public Use
  Company Number: HR-PFIZER INC-2015172822

PATIENT
  Age: 66 Year
  Sex: Male
  Weight: 81 kg

DRUGS (10)
  1. DIFLUCAN [Suspect]
     Active Substance: FLUCONAZOLE
     Indication: OROPHARYNGITIS FUNGAL
     Dosage: 100 MG, 1X/DAY
     Route: 048
     Dates: start: 20150117
  2. MARTEFARIN [Interacting]
     Active Substance: WARFARIN
     Dosage: 1X1
  3. ZALDIAR [Concomitant]
     Active Substance: ACETAMINOPHEN\TRAMADOL HYDROCHLORIDE
     Indication: PAIN
     Route: 048
     Dates: start: 2013
  4. SANVAL [Concomitant]
     Active Substance: ZOLPIDEM TARTRATE
     Indication: INSOMNIA
     Dosage: 5 MG, UNK
     Route: 048
     Dates: start: 2011
  5. HYGROTON [Concomitant]
     Active Substance: CHLORTHALIDONE
     Indication: HYPERTENSION
     Dosage: 25 MG, 1X/DAY
     Route: 048
     Dates: start: 2011
  6. ALDIZEM /00489701/ [Concomitant]
     Dosage: 60 MG, 2X/DAY
     Route: 048
     Dates: start: 2011
  7. PROGRAF [Concomitant]
     Active Substance: TACROLIMUS\TACROLIMUS ANHYDROUS
     Indication: RENAL TRANSPLANT
     Dosage: 0.5 MG, 1X/DAY
     Route: 048
     Dates: start: 2013
  8. MARTEFARIN [Interacting]
     Active Substance: WARFARIN
     Indication: MYOCARDIAL INFARCTION
     Dosage: 3 MG, 2X/DAY
     Route: 048
     Dates: start: 20141001
  9. CELLCEPT [Concomitant]
     Active Substance: MYCOPHENOLATE MOFETIL\MYCOPHENOLATE MOFETIL HYDROCHLORIDE
     Indication: RENAL TRANSPLANT
     Dosage: 250 MG, 2X/DAY
     Route: 048
     Dates: start: 2013
  10. ROJAZOL /00310801/ [Interacting]
     Active Substance: MICONAZOLE
     Indication: OROPHARYNGITIS FUNGAL
     Route: 048
     Dates: start: 20150117

REACTIONS (4)
  - Haemorrhage [Recovering/Resolving]
  - Drug interaction [Recovering/Resolving]
  - Haematoma [Recovering/Resolving]
  - Petechiae [Recovering/Resolving]

NARRATIVE: CASE EVENT DATE: 20150125
